FAERS Safety Report 11739759 (Version 3)
Quarter: 2016Q1

REPORT INFORMATION
  Report Type: Report from Study
  Country: DE (occurrence: CO)
  Receive Date: 20151113
  Receipt Date: 20160311
  Transmission Date: 20160525
  Serious: Yes (Hospitalization, Other)
  Sender: FDA-Public Use
  Company Number: DE-ACTELION-A-NJ2015-121938

PATIENT
  Age: 48 Year
  Sex: Female

DRUGS (6)
  1. FUROSEMIDE. [Concomitant]
     Active Substance: FUROSEMIDE
     Dosage: UNK
     Dates: start: 2011
  2. BOSENTAN [Concomitant]
     Active Substance: BOSENTAN
     Dosage: UNK
     Dates: start: 2011
  3. CARVEDILOL. [Concomitant]
     Active Substance: CARVEDILOL
  4. WARFARIN [Interacting]
     Active Substance: WARFARIN
     Indication: PRODUCT USED FOR UNKNOWN INDICATION
     Dosage: UNK
     Route: 065
  5. ACETAMINOPHEN. [Concomitant]
     Active Substance: ACETAMINOPHEN
     Dosage: UNK
  6. VENTAVIS [Suspect]
     Active Substance: ILOPROST
     Indication: PULMONARY ARTERIAL HYPERTENSION
     Dosage: 1 DF, 6X^S DAILY
     Route: 055
     Dates: start: 20100727

REACTIONS (11)
  - Epistaxis [Recovered/Resolved]
  - Dyspnoea [Recovering/Resolving]
  - Nasal congestion [Recovered/Resolved]
  - Mouth haemorrhage [Recovered/Resolved]
  - Cardiovascular disorder [Recovered/Resolved]
  - Cough [Recovering/Resolving]
  - Back pain [Not Recovered/Not Resolved]
  - Influenza like illness [Unknown]
  - Labelled drug-drug interaction medication error [Unknown]
  - Asphyxia [Recovered/Resolved]
  - Influenza [Recovered/Resolved]

NARRATIVE: CASE EVENT DATE: 20150713
